FAERS Safety Report 20349416 (Version 2)
Quarter: 2022Q1

REPORT INFORMATION
  Report Type: Spontaneous
  Country: US (occurrence: None)
  Receive Date: 20220119
  Receipt Date: 20220201
  Transmission Date: 20220424
  Serious: No
  Sender: FDA-Public Use
  Company Number: 2022A021812

PATIENT
  Sex: Female
  Weight: 56.7 kg

DRUGS (1)
  1. SYMBICORT [Suspect]
     Active Substance: BUDESONIDE\FORMOTEROL FUMARATE DIHYDRATE
     Indication: Asthma
     Dosage: 160/4.5 MCG, 2 PUFFS AT NIGHT ONLY
     Route: 055

REACTIONS (5)
  - Visual impairment [Unknown]
  - Device use issue [Unknown]
  - Intentional device misuse [Unknown]
  - Device delivery system issue [Unknown]
  - Product communication issue [Unknown]
